FAERS Safety Report 4462358-7 (Version None)
Quarter: 2004Q3

REPORT INFORMATION
  Report Type: 
  Country: None (occurrence: None)
  Receive Date: 20040929
  Receipt Date: 20040922
  Transmission Date: 20050211
  Serious: Yes (Other)
  Sender: FDA-Public Use
  Company Number: PHBS2004JP12766

PATIENT
  Age: 44 Year
  Sex: Male

DRUGS (6)
  1. CYCLOSPORINE [Suspect]
     Indication: BONE MARROW TRANSPLANT
     Route: 065
     Dates: start: 19971024
  2. METHOTREXATE [Suspect]
     Indication: BONE MARROW TRANSPLANT
     Dates: start: 19971024
  3. CYCLOPHOSPHAMIDE [Concomitant]
     Indication: BONE MARROW TRANSPLANT
     Dosage: 60 MG/KG/D
  4. IRRADIATION [Concomitant]
     Indication: BONE MARROW TRANSPLANT
  5. CHLORPHENIRAMINE MALEATE [Concomitant]
  6. FAMOTIDINE [Concomitant]

REACTIONS (6)
  - COUGH [None]
  - DYSPNOEA [None]
  - EOSINOPHIL COUNT INCREASED [None]
  - GRAFT VERSUS HOST DISEASE [None]
  - HYPOXIA [None]
  - INTERSTITIAL LUNG DISEASE [None]
